FAERS Safety Report 21738532 (Version 1)
Quarter: 2022Q4

REPORT INFORMATION
  Report Type: Spontaneous
  Country: US (occurrence: US)
  Receive Date: 20221216
  Receipt Date: 20221216
  Transmission Date: 20230113
  Serious: Yes (Death, Other)
  Sender: FDA-Public Use
  Company Number: US-SA-SAC20221215000085

PATIENT
  Age: 90 Year
  Sex: Female

DRUGS (1)
  1. CABLIVI [Suspect]
     Active Substance: CAPLACIZUMAB-YHDP
     Indication: Thrombotic thrombocytopenic purpura
     Dosage: UNK
     Route: 003
     Dates: start: 20221121

REACTIONS (2)
  - Death [Fatal]
  - Incorrect route of product administration [Unknown]

NARRATIVE: CASE EVENT DATE: 20221121
